FAERS Safety Report 22101812 (Version 3)
Quarter: 2023Q1

REPORT INFORMATION
  Report Type: Spontaneous
  Country: US (occurrence: US)
  Receive Date: 20230316
  Receipt Date: 20230328
  Transmission Date: 20230417
  Serious: Yes (Hospitalization)
  Sender: FDA-Public Use
  Company Number: US-002147023-NVSC2023US060835

PATIENT
  Sex: Female

DRUGS (1)
  1. PIQRAY [Suspect]
     Active Substance: ALPELISIB
     Indication: Hormone receptor positive HER2 negative breast cancer
     Dosage: 300 MG
     Route: 065
     Dates: start: 20230223, end: 20230313

REACTIONS (5)
  - Mucosa vesicle [Unknown]
  - Eye irritation [Unknown]
  - Rash [Unknown]
  - Mucosal inflammation [Unknown]
  - Stomatitis [Unknown]
